FAERS Safety Report 5149955-0 (Version None)
Quarter: 2006Q4

REPORT INFORMATION
  Report Type: 
  Country: None (occurrence: None)
  Receive Date: 20061108
  Receipt Date: 20061020
  Transmission Date: 20070319
  Serious: Yes (Other)
  Sender: FDA-Public Use
  Company Number: 2006130839

PATIENT
  Age: 15 Year
  Sex: Male

DRUGS (2)
  1. ZYRTEC [Suspect]
     Dosage: 10 MG (10 MG, 1 IN 1 D)
  2. CLARITIN [Suspect]
     Dosage: 10 MG (10 MG, 1 IN 1 D)

REACTIONS (4)
  - ERYTHEMA [None]
  - LYMPHOMA [None]
  - RASH PAPULAR [None]
  - SKIN LESION [None]
